FAERS Safety Report 9210053 (Version 1)
Quarter: 2012Q4

REPORT INFORMATION
  Report Type: 
  Country: IL (occurrence: IL)
  Receive Date: 20120903
  Receipt Date: 20120903
  Transmission Date: 20130627
  Serious: No
  Sender: FDA-Public Use
  Company Number: PHHY2012IL075945

PATIENT
  Age: 46 Year
  Sex: Male

DRUGS (3)
  1. TASIGNA [Suspect]
     Indication: CHRONIC MYELOID LEUKAEMIA
     Dosage: 800 mg, UNK
     Route: 048
     Dates: end: 20120829
  2. GLIVEC [Concomitant]
  3. DASATINIB [Concomitant]

REACTIONS (3)
  - Hypersensitivity [Unknown]
  - Rash [Unknown]
  - Pruritus [Unknown]
